FAERS Safety Report 17305237 (Version 1)
Quarter: 2020Q1

REPORT INFORMATION
  Report Type: Spontaneous
  Country: US (occurrence: US)
  Receive Date: 20200123
  Receipt Date: 20200123
  Transmission Date: 20200409
  Serious: No
  Sender: FDA-Public Use
  Company Number: US-PFIZER INC-2020030899

PATIENT
  Sex: Male

DRUGS (2)
  1. LYRICA CR [Suspect]
     Active Substance: PREGABALIN
     Dosage: 495 MG, UNK (TOOK 3 DOSES OF LYRICA CR 165MG)
  2. LYRICA CR [Suspect]
     Active Substance: PREGABALIN
     Indication: DIABETIC NEUROPATHY
     Dosage: 165 MG, DAILY

REACTIONS (2)
  - Drug ineffective [Unknown]
  - Off label use [Unknown]
